FAERS Safety Report 24034833 (Version 6)
Quarter: 2024Q4

REPORT INFORMATION
  Report Type: Spontaneous
  Country: US (occurrence: US)
  Receive Date: 20240701
  Receipt Date: 20241128
  Transmission Date: 20250115
  Serious: Yes (Hospitalization, Other)
  Sender: BAUSCH AND LOMB
  Company Number: US-BAUSCH-BL-2021-027512

PATIENT
  Age: 56 Year
  Sex: Female
  Weight: 61.2 kg

DRUGS (67)
  1. MINERALS\VITAMINS [Suspect]
     Active Substance: MINERALS\VITAMINS
     Indication: Macular degeneration
     Dosage: STARTED TAKING FOR 4 TO 5 YEARS
     Route: 048
     Dates: end: 2020
  2. BLINK GEL TEARS [Suspect]
     Active Substance: POLYETHYLENE GLYCOL 400
     Indication: Product used for unknown indication
     Route: 065
  3. BUSPAR [Concomitant]
     Active Substance: BUSPIRONE HYDROCHLORIDE
     Indication: Product used for unknown indication
     Route: 048
  4. VITAMIN D [Concomitant]
     Active Substance: VITAMIN D NOS
     Indication: Product used for unknown indication
     Dosage: 5000, UNITS
     Route: 065
  5. SINGULAIR [Concomitant]
     Active Substance: MONTELUKAST SODIUM
     Indication: Product used for unknown indication
     Route: 065
  6. GABAPENTIN [Concomitant]
     Active Substance: GABAPENTIN
     Indication: Product used for unknown indication
     Route: 048
  7. CLONAZEPAM [Concomitant]
     Active Substance: CLONAZEPAM
     Indication: Product used for unknown indication
     Route: 048
  8. ROPINIROLE [Concomitant]
     Active Substance: ROPINIROLE
     Indication: Product used for unknown indication
     Route: 048
  9. TOPIRAMATE [Concomitant]
     Active Substance: TOPIRAMATE
     Indication: Product used for unknown indication
     Route: 048
  10. SYNTHROID [Concomitant]
     Active Substance: LEVOTHYROXINE SODIUM
     Indication: Product used for unknown indication
     Route: 048
  11. OMEPRAZOLE [Concomitant]
     Active Substance: OMEPRAZOLE
     Indication: Product used for unknown indication
     Route: 048
  12. CYCLOBENZAPRINE [Concomitant]
     Active Substance: CYCLOBENZAPRINE
     Indication: Product used for unknown indication
     Route: 048
  13. HERBALS\TURMERIC [Concomitant]
     Active Substance: HERBALS\TURMERIC
     Indication: Product used for unknown indication
     Route: 048
  14. ADVAIR HFA [Concomitant]
     Active Substance: FLUTICASONE PROPIONATE\SALMETEROL XINAFOATE
     Indication: Product used for unknown indication
     Dosage: INHALE ^1 PUFF(S) TWICE A DAY BY INHALATION ROUTE/ 250 MG -50 MCGIDOSE POWDER FOR INHALATION
     Route: 065
  15. ASPIRIN [Concomitant]
     Active Substance: ASPIRIN
     Indication: Product used for unknown indication
     Route: 048
  16. CIPROFLOXACIN [Concomitant]
     Active Substance: CIPROFLOXACIN
     Indication: Product used for unknown indication
     Dosage: 500 MG TABLET
     Route: 048
  17. COLESTIPOL [Concomitant]
     Active Substance: COLESTIPOL
     Indication: Product used for unknown indication
     Route: 065
  18. CREON [Concomitant]
     Active Substance: PANCRELIPASE AMYLASE\PANCRELIPASE LIPASE\PANCRELIPASE PROTEASE
     Indication: Product used for unknown indication
     Dosage: TAKE 3 CAPSULES. BY MOUTH. WITH EVERY MEAL AND 1 WITH EVERY SNACK
     Route: 048
  19. DICLOFENAC [Concomitant]
     Active Substance: DICLOFENAC
     Indication: Product used for unknown indication
     Dosage: APPLY 2 GRAM. TO THE AFFECTED ARENS) BY TOPICAL ROUTE 4 TIMES A DAY
     Route: 061
  20. EPINEPHRINE [Concomitant]
     Active Substance: EPINEPHRINE
     Indication: Product used for unknown indication
     Dosage: TAKE 1 AUTO(S) BY INJECTION ROUTE AS DIRECTED.
     Route: 061
  21. ERGOCALCIFEROL [Concomitant]
     Active Substance: ERGOCALCIFEROL
     Indication: Product used for unknown indication
     Dosage: TWO CAPSULES THE FIRST WEEK OF EVERY MONTH THEN 1 CAPSULE WEEKLY
     Route: 065
  22. LEVALBUTEROL [Concomitant]
     Active Substance: LEVALBUTEROL
     Indication: Product used for unknown indication
     Dosage: INHALE 2 PUFF(S) EVERY 6 HOURS BY INHALATION ROUTE.
     Route: 065
  23. LEVOTHYROXINE [Concomitant]
     Active Substance: LEVOTHYROXINE
     Indication: Product used for unknown indication
     Route: 048
  24. LEVOTHYROXINE [Concomitant]
     Active Substance: LEVOTHYROXINE
     Route: 048
  25. MAGNESIUM [Concomitant]
     Active Substance: MAGNESIUM
     Indication: Product used for unknown indication
     Dosage: 250 MG DAILY
     Route: 065
  26. MECLIZINE [Concomitant]
     Active Substance: MECLIZINE HYDROCHLORIDE
     Indication: Product used for unknown indication
     Dosage: TAKE 1 TABLET(S) EVERY DAY BY ORAL ROUTE AS NEEDED.
     Route: 048
  27. MONTELUKAST [Concomitant]
     Active Substance: MONTELUKAST
     Indication: Product used for unknown indication
     Dosage: TAKE I TABLET BY MOUTH EVERY DAY IN THE EVENING
     Route: 048
  28. ONDANSETRON [Concomitant]
     Active Substance: ONDANSETRON
     Indication: Nausea
     Dosage: DISSOLVE I TABLET ON THE TONGUE EVERY 8 HOUR.S AS NEEDED FOR NAUSE.A AND ?VOMITING
     Route: 065
  29. ONDANSETRON [Concomitant]
     Active Substance: ONDANSETRON
     Indication: Vomiting
  30. OXYCODONE [Concomitant]
     Active Substance: OXYCODONE
     Indication: Product used for unknown indication
     Dosage: TAKE 1 TABLET DAILY AS NEEDED
     Route: 065
  31. POTASSIUM [Concomitant]
     Active Substance: POTASSIUM
     Indication: Product used for unknown indication
     Dosage: 595 1 TABLET DAILY
     Route: 065
  32. ROPINIROLE [Concomitant]
     Active Substance: ROPINIROLE
     Indication: Product used for unknown indication
     Dosage: TAKE AS DIRECTED UP TO ONE PO AM TWO PO AT 6 PM, AND TWO AT BEDTIME FOR LEG PAINS/SPASM (TABLET)
     Route: 065
  33. SELENIUM [Concomitant]
     Active Substance: SELENIUM
     Indication: Product used for unknown indication
     Dosage: TAKE 1 TABLET(S) EVERY DAY BY ORAL ROUTE. 200 MCG TABLET
     Route: 048
  34. TOPIRAMATE [Concomitant]
     Active Substance: TOPIRAMATE
     Indication: Product used for unknown indication
     Dosage: TAKE 2 TABLET(S) TWICE A DAY
     Route: 065
  35. PAXIL [Concomitant]
     Active Substance: PAROXETINE HYDROCHLORIDE
     Indication: Product used for unknown indication
     Route: 048
  36. PROVIGIL [Concomitant]
     Active Substance: MODAFINIL
     Indication: Product used for unknown indication
     Route: 065
     Dates: start: 2002
  37. BEXTRA [Concomitant]
     Active Substance: VALDECOXIB
     Indication: Product used for unknown indication
     Route: 065
  38. CLORAZEPATE DIPOTASSIUM [Concomitant]
     Active Substance: CLORAZEPATE DIPOTASSIUM
     Indication: Product used for unknown indication
     Route: 065
  39. AMOXICILLIN [Concomitant]
     Active Substance: AMOXICILLIN
     Indication: Bladder disorder
     Dosage: 1 TABLET AS NEEDED
     Route: 048
     Dates: start: 20150507
  40. BIOTIN [Concomitant]
     Active Substance: BIOTIN
     Indication: Product used for unknown indication
     Route: 048
  41. CHLORHEXIDINE [Concomitant]
     Active Substance: CHLORHEXIDINE
     Indication: Product used for unknown indication
     Route: 048
  42. MECLIZINE [Concomitant]
     Active Substance: MECLIZINE HYDROCHLORIDE
     Indication: Product used for unknown indication
     Route: 048
  43. METHADONE [Concomitant]
     Active Substance: METHADONE HYDROCHLORIDE
     Indication: Product used for unknown indication
     Route: 048
     Dates: start: 20150511
  44. MONTELUKAST [Concomitant]
     Active Substance: MONTELUKAST
     Indication: Product used for unknown indication
     Route: 048
  45. DOCUSATE SODIUM [Concomitant]
     Active Substance: DOCUSATE SODIUM
     Indication: Product used for unknown indication
     Route: 048
  46. FENTANYL [Concomitant]
     Active Substance: FENTANYL
     Indication: Product used for unknown indication
     Dosage: 50 MCG/ML INJ.
     Route: 048
  47. ONDANSETRON [Concomitant]
     Active Substance: ONDANSETRON
     Indication: Product used for unknown indication
     Route: 048
     Dates: start: 20151113
  48. PANCRELIPASE [Concomitant]
     Active Substance: PANCRELIPASE
     Indication: Product used for unknown indication
     Route: 048
  49. POLYCARBOPHIL [Concomitant]
     Active Substance: POLYCARBOPHIL
     Indication: Product used for unknown indication
     Route: 048
  50. FLUTICASONE PROPIONATE\SALMETEROL XINAFOATE [Concomitant]
     Active Substance: FLUTICASONE PROPIONATE\SALMETEROL XINAFOATE
     Indication: Product used for unknown indication
     Route: 065
  51. NAPHAZOLINE;PHENYLEPHRINE [Concomitant]
     Indication: Product used for unknown indication
     Route: 047
  52. NITROFURANTOIN [Concomitant]
     Active Substance: NITROFURANTOIN
     Indication: Product used for unknown indication
     Route: 048
  53. PRAMIPEXOLE [Concomitant]
     Active Substance: PRAMIPEXOLE\PRAMIPEXOLE DIHYDROCHLORIDE
     Indication: Product used for unknown indication
     Route: 048
  54. TORSEMIDE [Concomitant]
     Active Substance: TORSEMIDE
     Indication: Product used for unknown indication
     Route: 048
  55. CLARITIN [Concomitant]
     Active Substance: LORATADINE
     Indication: Product used for unknown indication
     Dates: start: 20120726
  56. CYANOCOBALAMIN [Concomitant]
     Active Substance: CYANOCOBALAMIN
     Indication: Product used for unknown indication
     Dosage: 1 ML EVERY MONTH BY INJECTION ROUTE
     Route: 065
  57. ALBUTEROL SULFATE [Concomitant]
     Active Substance: ALBUTEROL SULFATE
     Indication: Product used for unknown indication
     Dosage: INHALE 2 PUFFS EVERY 4 HOURS BY INHALATION ROUTE
     Route: 045
  58. NALOXONE [Concomitant]
     Active Substance: NALOXONE
     Indication: Product used for unknown indication
     Dosage: 1 SPRAY BY NASAL ROUTE
     Route: 045
  59. PROMETHAZINE [Concomitant]
     Active Substance: PROMETHAZINE HYDROCHLORIDE
     Indication: Product used for unknown indication
     Dosage: EVERY 6 HOURS BY NASAL ROUTE
     Route: 048
  60. BACITRACIN [Concomitant]
     Active Substance: BACITRACIN
     Indication: Product used for unknown indication
     Dosage: APPLY TOPICALLY 3 TIMES A DAY
     Route: 061
  61. AUGMENTIN [Concomitant]
     Active Substance: AMOXICILLIN\CLAVULANATE POTASSIUM
     Indication: Product used for unknown indication
     Dosage: TAKE 1 TABLET BY MOUTH 2 TIMES A DAY
     Route: 048
  62. CRANBERRY [Concomitant]
     Active Substance: CRANBERRY
     Indication: Product used for unknown indication
     Route: 048
  63. DIFLUCAN [Concomitant]
     Active Substance: FLUCONAZOLE
     Indication: Product used for unknown indication
     Route: 048
  64. XOPENEX HFA [Concomitant]
     Active Substance: LEVALBUTEROL TARTRATE
     Indication: Product used for unknown indication
     Dosage: INHALE 2 PUFFS INTO LUNGS EVERY 6 HOURS
     Route: 045
  65. PHENAZOPYRIDINE [Concomitant]
     Active Substance: PHENAZOPYRIDINE
     Indication: Product used for unknown indication
     Dosage: 100 MG TABLET 1 TABLET BY MOUTH THREE TIMES A DAY AS NEEDED
     Route: 048
  66. REVITA (POLYSORBATE 80) [Concomitant]
     Indication: Product used for unknown indication
     Route: 065
  67. BILIRUBIN [Concomitant]
     Active Substance: BILIRUBIN
     Indication: Product used for unknown indication
     Route: 065

REACTIONS (92)
  - Suicidal ideation [Unknown]
  - Gait inability [Not Recovered/Not Resolved]
  - Spinal cord disorder [Not Recovered/Not Resolved]
  - Neuropathy peripheral [Unknown]
  - Renal failure [Unknown]
  - Autonomic neuropathy [Unknown]
  - Chronic kidney disease [Unknown]
  - Pancreatitis chronic [Unknown]
  - Intervertebral disc protrusion [Unknown]
  - Syncope [Unknown]
  - Pancreatitis chronic [Unknown]
  - Myelopathy [Unknown]
  - Vestibular neuronitis [Unknown]
  - Blood copper decreased [Not Recovered/Not Resolved]
  - Wheelchair user [Not Recovered/Not Resolved]
  - Ill-defined disorder [Not Recovered/Not Resolved]
  - Visual impairment [Not Recovered/Not Resolved]
  - Sensory loss [Not Recovered/Not Resolved]
  - Blood zinc abnormal [Not Recovered/Not Resolved]
  - Impaired quality of life [Not Recovered/Not Resolved]
  - Pain [Unknown]
  - Muscular weakness [Unknown]
  - Grip strength decreased [Unknown]
  - Musculoskeletal discomfort [Unknown]
  - Pain in extremity [Unknown]
  - Fall [Unknown]
  - Hypoaesthesia [Unknown]
  - Balance disorder [Unknown]
  - Paraesthesia [Unknown]
  - Chest pain [Unknown]
  - Gait disturbance [Unknown]
  - Arthralgia [Unknown]
  - Muscle spasms [Unknown]
  - Restless legs syndrome [Unknown]
  - Oedema peripheral [Unknown]
  - Back pain [Unknown]
  - Gastrointestinal disorder [Unknown]
  - Loss of proprioception [Unknown]
  - Condition aggravated [Not Recovered/Not Resolved]
  - Gastrooesophageal reflux disease [Unknown]
  - Irritable bowel syndrome [Unknown]
  - Undifferentiated connective tissue disease [Unknown]
  - Fibromyalgia [Unknown]
  - Asthma [Unknown]
  - Hypothyroidism [Unknown]
  - Thyroid disorder [Unknown]
  - Copper deficiency [Unknown]
  - Generalised anxiety disorder [Unknown]
  - Insomnia [Unknown]
  - Chronic idiopathic pain syndrome [Unknown]
  - Migraine [Unknown]
  - Abdominal pain upper [Unknown]
  - Diarrhoea [Unknown]
  - Nausea [Unknown]
  - Osteoarthritis [Unknown]
  - Drug hypersensitivity [Unknown]
  - Nasal congestion [Unknown]
  - Haematuria [Unknown]
  - Fatigue [Unknown]
  - Chills [Unknown]
  - Dysuria [Unknown]
  - Vision blurred [Unknown]
  - Cough [Unknown]
  - Pyrexia [Unknown]
  - Chest discomfort [Unknown]
  - Peripheral swelling [Unknown]
  - Abdominal distension [Unknown]
  - Constipation [Unknown]
  - Asthenia [Unknown]
  - Sleep disorder [Unknown]
  - Headache [Unknown]
  - Food allergy [Unknown]
  - Tenderness [Unknown]
  - Myofascial pain syndrome [Unknown]
  - Hypersomnia [Unknown]
  - Tension headache [Unknown]
  - Carpal tunnel syndrome [Unknown]
  - Gastritis [Unknown]
  - Labyrinthitis [Unknown]
  - Dyspepsia [Unknown]
  - Pollakiuria [Unknown]
  - Nocturia [Unknown]
  - Urinary hesitation [Unknown]
  - Weight decreased [Unknown]
  - Hypersensitivity [Unknown]
  - Behaviour disorder [Unknown]
  - Wound [Unknown]
  - Psychotic disorder [Not Recovered/Not Resolved]
  - Vomiting [Unknown]
  - Abdominal pain [Unknown]
  - Blood alkaline phosphatase increased [Unknown]
  - Ataxia [Unknown]

NARRATIVE: CASE EVENT DATE: 20010725
